FAERS Safety Report 23168112 (Version 1)
Quarter: 2023Q4

REPORT INFORMATION
  Report Type: Spontaneous
  Country: IT (occurrence: IT)
  Receive Date: 20231109
  Receipt Date: 20231109
  Transmission Date: 20240110
  Serious: Yes (Other)
  Sender: FDA-Public Use
  Company Number: IT-ELI_LILLY_AND_COMPANY-IT202311002110

PATIENT
  Sex: Female

DRUGS (1)
  1. SELPERCATINIB [Suspect]
     Active Substance: SELPERCATINIB
     Indication: Adenocarcinoma
     Dosage: UNK, UNKNOWN
     Route: 065
     Dates: start: 202309

REACTIONS (2)
  - Pulmonary embolism [Unknown]
  - Femur fracture [Unknown]
